FAERS Safety Report 6608707-2 (Version None)
Quarter: 2010Q1

REPORT INFORMATION
  Report Type: 
  Country: None (occurrence: None)
  Receive Date: 20100301
  Receipt Date: 20100217
  Transmission Date: 20100710
  Serious: Yes (Hospitalization)
  Sender: FDA-Public Use
  Company Number: PHHY2010CL09764

PATIENT
  Age: 58 Year
  Sex: Female

DRUGS (5)
  1. TAREG [Suspect]
     Indication: HYPERTENSION
     Dosage: 1 TABLET (160 MG) PER DAY
  2. CLONAZEPAM [Concomitant]
  3. SERTRALINE HCL [Concomitant]
  4. CALCIUM CARBONATE [Concomitant]
  5. QUETIAPINE [Concomitant]

REACTIONS (2)
  - DEPRESSION [None]
  - PERSONALITY DISORDER [None]
